FAERS Safety Report 15994760 (Version 1)
Quarter: 2019Q1

REPORT INFORMATION
  Report Type: Spontaneous
  Country: US (occurrence: US)
  Receive Date: 20190221
  Receipt Date: 20190221
  Transmission Date: 20190418
  Serious: Yes (Disabling)
  Sender: FDA-Public Use
  Company Number: None

PATIENT
  Age: 53 Year
  Sex: Female
  Weight: 75.15 kg

DRUGS (2)
  1. BIOTIN [Concomitant]
     Active Substance: BIOTIN
  2. GLATIRAMER ACETATE INJECTION [Suspect]
     Active Substance: GLATIRAMER ACETATE
     Indication: MULTIPLE SCLEROSIS
     Dosage: ?          QUANTITY:1 INJECTION(S);OTHER FREQUENCY:3 TIMES PER WEEKIN;?
     Route: 058
     Dates: end: 20190211

REACTIONS (6)
  - Injection site erythema [None]
  - Pain in extremity [None]
  - Injection site urticaria [None]
  - Paraesthesia [None]
  - Injection site pain [None]
  - Fatigue [None]

NARRATIVE: CASE EVENT DATE: 20190211
